FAERS Safety Report 19164947 (Version 1)
Quarter: 2021Q2

REPORT INFORMATION
  Report Type: Spontaneous
  Country: US (occurrence: US)
  Receive Date: 20210421
  Receipt Date: 20210421
  Transmission Date: 20210717
  Serious: No
  Sender: FDA-Public Use
  Company Number: US-TAKEDA-2021TUS023764

PATIENT
  Age: 58 Year
  Sex: Female
  Weight: 132 kg

DRUGS (20)
  1. CARAFATE [Concomitant]
     Active Substance: SUCRALFATE
     Indication: ULCER
  2. PRENATAL VITAMINS [MINERALS NOS;VITAMINS NOS] [Concomitant]
     Active Substance: MINERALS\VITAMINS
  3. FISH OIL [Concomitant]
     Active Substance: FISH OIL
  4. VONVENDI [Suspect]
     Active Substance: VON WILLEBRAND FACTOR (RECOMBINANT)
     Dosage: 4000 INTERNATIONAL UNIT, 2/WEEK
     Route: 042
     Dates: start: 20200623
  5. PROTOXIN [Concomitant]
     Active Substance: CLOSTRIDIUM BOTULINUM
     Indication: ULCER
  6. VONVENDI [Suspect]
     Active Substance: VON WILLEBRAND FACTOR (RECOMBINANT)
     Dosage: 4000 INTERNATIONAL UNIT, 2/WEEK
     Route: 042
     Dates: start: 20200623
  7. METOPROLOL. [Concomitant]
     Active Substance: METOPROLOL
     Indication: HYPERTENSION
  8. TRULICITY [Concomitant]
     Active Substance: DULAGLUTIDE
     Indication: DIABETES MELLITUS
  9. ALDACTONE [Concomitant]
     Active Substance: SPIRONOLACTONE
     Indication: FLUID IMBALANCE
  10. METFORMIN [Concomitant]
     Active Substance: METFORMIN HYDROCHLORIDE
     Indication: DIABETES MELLITUS
  11. FLAXSEED OIL [LINUM USITATISSIMUM SEED OIL] [Concomitant]
     Active Substance: HERBALS\LINSEED OIL
  12. VONVENDI [Suspect]
     Active Substance: VON WILLEBRAND FACTOR (RECOMBINANT)
     Dosage: 1500 INTERNATIONAL UNIT, 2/WEEK
     Route: 042
     Dates: start: 20200623
  13. PAXIL [Concomitant]
     Active Substance: PAROXETINE HYDROCHLORIDE
     Indication: DEPRESSION
  14. WELLBUTRIN [Concomitant]
     Active Substance: BUPROPION HYDROCHLORIDE
     Indication: DEPRESSION
  15. BREO ELLIPTA [Concomitant]
     Active Substance: FLUTICASONE FUROATE\VILANTEROL TRIFENATATE
  16. VONVENDI [Suspect]
     Active Substance: VON WILLEBRAND FACTOR (RECOMBINANT)
     Indication: VON WILLEBRAND^S DISEASE
     Dosage: 4000 INTERNATIONAL UNIT, 2/WEEK
     Route: 042
     Dates: start: 20200623
  17. IRON [Concomitant]
     Active Substance: IRON
  18. VITAMIN B12 [Concomitant]
     Active Substance: CYANOCOBALAMIN
  19. LISINOPRIL. [Concomitant]
     Active Substance: LISINOPRIL
     Indication: HYPERTENSION
  20. GABAPENTIN. [Concomitant]
     Active Substance: GABAPENTIN
     Indication: NEUROPATHY PERIPHERAL

REACTIONS (3)
  - Product distribution issue [Unknown]
  - Product dose omission issue [Unknown]
  - No adverse event [Unknown]

NARRATIVE: CASE EVENT DATE: 20210416
